FAERS Safety Report 4901209-0 (Version None)
Quarter: 2006Q1

REPORT INFORMATION
  Report Type: 
  Country: None (occurrence: None)
  Receive Date: 20060201
  Receipt Date: 20060124
  Transmission Date: 20060701
  Serious: Yes (Hospitalization)
  Sender: FDA-Public Use
  Company Number: 200511645BWH

PATIENT
  Age: 72 Year
  Sex: Female
  Weight: 78.4723 kg

DRUGS (5)
  1. AVELOX [Suspect]
     Indication: ARTHROPOD STING
     Dosage: SEE IMAGE
     Dates: start: 20050801
  2. AVELOX [Suspect]
     Indication: ARTHROPOD STING
     Dosage: SEE IMAGE
     Dates: start: 20050801
  3. COUMADIN [Concomitant]
  4. TOPROL [Concomitant]
  5. METRONIDAZOLE [Concomitant]

REACTIONS (9)
  - ANXIETY [None]
  - ASTHENIA [None]
  - CLOSTRIDIUM COLITIS [None]
  - DIARRHOEA [None]
  - DYSSTASIA [None]
  - ERYTHEMA [None]
  - INFECTION [None]
  - PAIN [None]
  - SWELLING [None]
